FAERS Safety Report 11768628 (Version 2)
Quarter: 2016Q1

REPORT INFORMATION
  Report Type: Spontaneous
  Country: JP (occurrence: JP)
  Receive Date: 20151123
  Receipt Date: 20160106
  Transmission Date: 20160525
  Serious: Yes (Hospitalization)
  Sender: FDA-Public Use
  Company Number: JP-MYLANLABS-2015M1039713

PATIENT

DRUGS (2)
  1. CORTICOSTEROIDS [Suspect]
     Active Substance: CORTICOSTEROID NOS
     Indication: ASTHMA
     Route: 055
  2. PREDNISOLONE MYLAN [Suspect]
     Active Substance: PREDNISOLONE
     Indication: ASTHMA
     Dosage: UNK
     Route: 048

REACTIONS (3)
  - Sepsis [Recovering/Resolving]
  - Altered state of consciousness [Recovering/Resolving]
  - Sinusitis bacterial [Recovering/Resolving]
